FAERS Safety Report 4802157-7 (Version None)
Quarter: 2005Q4

REPORT INFORMATION
  Report Type: 
  Country: None (occurrence: None)
  Receive Date: 20051018
  Receipt Date: 20051005
  Transmission Date: 20060501
  Serious: Yes (Other)
  Sender: FDA-Public Use
  Company Number: 200517066US

PATIENT
  Sex: Female
  Weight: 71 kg

DRUGS (5)
  1. AMARYL [Suspect]
     Indication: DIABETES MELLITUS
     Route: 048
     Dates: start: 20050928, end: 20050929
  2. METFORMIN HCL [Concomitant]
     Indication: DIABETES MELLITUS
     Route: 048
     Dates: start: 20050922, end: 20050927
  3. AMITRIPTYLINE HCL [Concomitant]
     Dosage: DOSE: NOT PROVIDED
  4. ACIPHEX [Concomitant]
     Dosage: DOSE: NOT PROVIDED
  5. ALBUTEROL [Concomitant]
     Dosage: DOSE: NOT PROVIDED

REACTIONS (4)
  - ABNORMAL BEHAVIOUR [None]
  - ACTIVITIES OF DAILY LIVING IMPAIRED [None]
  - AFFECTIVE DISORDER [None]
  - AMNESIA [None]
